FAERS Safety Report 21149670 (Version 2)
Quarter: 2022Q3

REPORT INFORMATION
  Report Type: Spontaneous
  Country: FR (occurrence: FR)
  Receive Date: 20220729
  Receipt Date: 20220822
  Transmission Date: 20221026
  Serious: Yes (Other)
  Sender: FDA-Public Use
  Company Number: None

PATIENT
  Age: 24 Year
  Sex: Female
  Weight: 55 kg

DRUGS (1)
  1. ETHINYL ESTRADIOL\LEVONORGESTREL [Suspect]
     Active Substance: ETHINYL ESTRADIOL\LEVONORGESTREL
     Indication: Oral contraception
     Dosage: 1 DF, DAILY, 21 DAYS PER MONTH
     Route: 048
     Dates: start: 20160301, end: 20220713

REACTIONS (1)
  - Focal nodular hyperplasia [Not Recovered/Not Resolved]

NARRATIVE: CASE EVENT DATE: 20220208
